FAERS Safety Report 10461141 (Version 3)
Quarter: 2020Q1

REPORT INFORMATION
  Report Type: Spontaneous
  Country: JP (occurrence: JP)
  Receive Date: 20140918
  Receipt Date: 20200117
  Transmission Date: 20200409
  Serious: Yes (Hospitalization, Other)
  Sender: FDA-Public Use
  Company Number: JP-CELGENEUS-087-21880-14071179

PATIENT
  Age: 69 Year
  Sex: Male
  Weight: 57.3 kg

DRUGS (82)
  1. LENADEX [Suspect]
     Active Substance: DEXAMETHASONE ACETATE
     Dosage: 20 MILLIGRAM
     Route: 048
     Dates: start: 20130307, end: 20130308
  2. LENADEX [Suspect]
     Active Substance: DEXAMETHASONE ACETATE
     Dosage: 20 MILLIGRAM
     Route: 048
     Dates: start: 20130314, end: 20130315
  3. ENSURE [Concomitant]
     Active Substance: AMINO ACIDS\DEXTROSE\ELECTROLYTES NOS\SOYBEAN OIL\VITAMINS
     Indication: MALNUTRITION
     Dosage: 500 MILLILITER
     Route: 048
     Dates: start: 20130226, end: 20130313
  4. ENSURE [Concomitant]
     Active Substance: AMINO ACIDS\DEXTROSE\ELECTROLYTES NOS\SOYBEAN OIL\VITAMINS
     Dosage: 250 MILLILITER
     Route: 048
     Dates: start: 20130316, end: 20130318
  5. VICCLOX [Concomitant]
     Active Substance: ACYCLOVIR SODIUM
     Indication: ANTIVIRAL PROPHYLAXIS
     Dosage: 400 MILLIGRAM
     Route: 048
     Dates: start: 20130226, end: 20130330
  6. ALBUMIN [Concomitant]
     Active Substance: ALBUMIN HUMAN
     Dosage: 100 MILLILITER
     Route: 041
     Dates: start: 20130314, end: 20130314
  7. PLATELETS [Concomitant]
     Active Substance: HUMAN PLATELET, ALLOGENIC
     Dosage: 10 UNITS
     Route: 041
     Dates: start: 20130316, end: 20130316
  8. PLATELETS [Concomitant]
     Active Substance: HUMAN PLATELET, ALLOGENIC
     Dosage: 10 UNITS
     Route: 041
     Dates: start: 20130325, end: 20130325
  9. DECADRON [Concomitant]
     Active Substance: DEXAMETHASONE
     Indication: PRODUCT USED FOR UNKNOWN INDICATION
     Dosage: 6.6 MILLIGRAM
     Route: 065
     Dates: start: 20130227, end: 20130302
  10. ITRIZOLE [Concomitant]
     Active Substance: ITRACONAZOLE
     Indication: ANTIVIRAL PROPHYLAXIS
     Dosage: 20 MILLILITER
     Route: 048
     Dates: start: 20130305, end: 20130330
  11. DUROTEP [Concomitant]
     Active Substance: FENTANYL
     Indication: CANCER PAIN
     Dosage: 4.2 MILLIGRAM
     Route: 062
     Dates: start: 20130226, end: 20130330
  12. VITAMEDIN [Concomitant]
     Active Substance: CYANOCOBALAMIN\PYRIDOXINE HYDROCHLORIDE\THIAMINE
     Indication: HYPOVITAMINOSIS
     Route: 041
     Dates: start: 20130226, end: 20130312
  13. GLUCOSE [Concomitant]
     Active Substance: DEXTROSE
     Indication: MALNUTRITION
     Dosage: 300 MILLILITER
     Route: 041
     Dates: start: 20130226, end: 20130302
  14. NEUART [Concomitant]
     Active Substance: ANTITHROMBIN III HUMAN
     Indication: ANTITHROMBIN III DEFICIENCY
     Dosage: 500 UNITS
     Route: 041
     Dates: start: 20130225, end: 20130323
  15. HUMULIN NOS [Concomitant]
     Active Substance: INSULIN HUMAN
     Indication: HYPERGLYCAEMIA
     Dosage: .1 MILLILITER
     Route: 058
     Dates: start: 20130305, end: 20130319
  16. ASPARA POTASSIUM [Concomitant]
     Active Substance: POTASSIUM ASPARTATE
     Indication: HYPOKALAEMIA
     Dosage: 20 MILLILITER
     Route: 041
     Dates: start: 20130322, end: 20130329
  17. FULCALIQ [Concomitant]
     Active Substance: AMINO ACIDS\CARBOHYDRATES\ELECTROLYTES NOS\VITAMINS
     Indication: MALNUTRITION
     Dosage: 903 MILLILITER
     Route: 041
     Dates: start: 20130319, end: 20130319
  18. CONCENTRATED RED CELLS [Concomitant]
     Active Substance: HUMAN RED BLOOD CELL
     Dosage: 2 UNITS
     Route: 041
     Dates: start: 20130315, end: 20130315
  19. PLATELETS [Concomitant]
     Active Substance: HUMAN PLATELET, ALLOGENIC
     Dosage: 10 UNITS
     Route: 041
     Dates: start: 20130306, end: 20130306
  20. PLATELETS [Concomitant]
     Active Substance: HUMAN PLATELET, ALLOGENIC
     Dosage: 15 UNITS
     Route: 041
     Dates: start: 20130320, end: 20130320
  21. LENADEX [Suspect]
     Active Substance: DEXAMETHASONE ACETATE
     Indication: PLASMA CELL MYELOMA RECURRENT
     Dosage: 20 MILLIGRAM
     Route: 048
     Dates: start: 20130304, end: 20130305
  22. VELCADE [Suspect]
     Active Substance: BORTEZOMIB
     Indication: PLASMA CELL MYELOMA RECURRENT
     Route: 041
     Dates: start: 20111115, end: 201201
  23. NEXIUM [Concomitant]
     Active Substance: ESOMEPRAZOLE MAGNESIUM
     Indication: GASTRIC ULCER
     Dosage: 20 MILLIGRAM
     Route: 048
     Dates: start: 20130226, end: 20130330
  24. MAGLAX [Concomitant]
     Active Substance: MAGNESIUM OXIDE
     Indication: CONSTIPATION
     Dosage: 1500 MILLIGRAM
     Route: 048
     Dates: start: 20130301, end: 20130330
  25. BAYASPIRIN [Concomitant]
     Active Substance: ASPIRIN
     Indication: THROMBOSIS PROPHYLAXIS
     Dosage: 100 MILLIGRAM
     Route: 048
     Dates: start: 20130304, end: 20130317
  26. SOLDEM 1 [Concomitant]
     Active Substance: DEXTROSE\SODIUM CHLORIDE\SODIUM LACTATE
     Indication: MALNUTRITION
     Dosage: 1000 MILLILITER
     Route: 041
     Dates: start: 20130225, end: 20130316
  27. ALBUMIN [Concomitant]
     Active Substance: ALBUMIN HUMAN
     Dosage: 50 MILLILITER
     Route: 041
     Dates: start: 20130313, end: 20130313
  28. HEPARIN [Concomitant]
     Active Substance: HEPARIN SODIUM
     Indication: PRODUCT USED FOR UNKNOWN INDICATION
     Dosage: 5 MILLILITER
     Route: 041
     Dates: start: 20130313, end: 20130313
  29. NEO-MINOPHAGEN C [Concomitant]
     Active Substance: AMMONIUM GLYCYRRHIZATE
     Indication: HEPATIC FUNCTION ABNORMAL
     Dosage: 60 MILLILITER
     Route: 041
     Dates: start: 20130301, end: 20130319
  30. PLATELETS [Concomitant]
     Active Substance: HUMAN PLATELET, ALLOGENIC
     Indication: PLASMA CELL MYELOMA
     Dosage: 10 UNITS
     Route: 041
     Dates: start: 20130303, end: 20130303
  31. PLATELETS [Concomitant]
     Active Substance: HUMAN PLATELET, ALLOGENIC
     Dosage: 10 UNITS
     Route: 041
     Dates: start: 20130323, end: 20130323
  32. ENSURE H [Concomitant]
     Active Substance: CARBOHYDRATES\FATTY ACIDS\MINERALS\PROTEIN\VITAMINS
     Indication: MALNUTRITION
     Dosage: 250 MILLILITER
     Route: 048
     Dates: start: 20130315, end: 20130321
  33. OXINORM [Concomitant]
     Indication: CANCER PAIN
     Dosage: 5 MILLIGRAM
     Route: 048
     Dates: start: 20130226, end: 20130228
  34. PURSENNID [Concomitant]
     Indication: CONSTIPATION
     Dosage: 12 MILLIGRAM
     Route: 048
     Dates: start: 20130316, end: 20130318
  35. DAIPHEN [Concomitant]
     Active Substance: SULFAMETHOXAZOLE\TRIMETHOPRIM
     Indication: ANTIFUNGAL PROPHYLAXIS
     Route: 048
     Dates: start: 20130302, end: 20130321
  36. LASIX [Concomitant]
     Active Substance: FUROSEMIDE
     Indication: CARDIAC FAILURE
     Dosage: 6 MILLILITER
     Route: 041
     Dates: start: 20130225, end: 20130330
  37. INTRALIPOS [Concomitant]
     Active Substance: SOYBEAN OIL
     Indication: MALNUTRITION
     Dosage: 150 MILLILITER
     Route: 041
     Dates: start: 20130227, end: 20130228
  38. SOLDEM 3A [Concomitant]
     Active Substance: CARBOHYDRATES\POTASSIUM CHLORIDE\SODIUM CHLORIDE\SODIUM LACTATE
     Indication: MALNUTRITION
     Dosage: 1000 MILLILITER
     Route: 041
     Dates: start: 20130320, end: 20130329
  39. FUNGUARD [Concomitant]
     Active Substance: MICAFUNGIN SODIUM
     Indication: INFECTION
     Dosage: 150 MILLIGRAM
     Route: 041
     Dates: start: 20130225, end: 20130302
  40. ALBUMIN [Concomitant]
     Active Substance: ALBUMIN HUMAN
     Dosage: 50 MILLILITER
     Route: 041
     Dates: start: 20130303, end: 20130303
  41. GRAN [Concomitant]
     Active Substance: FILGRASTIM
     Indication: NEUTROPENIA
     Dosage: .3 MILLILITER
     Route: 058
     Dates: start: 20130318, end: 20130328
  42. CONCENTRATED RED CELLS [Concomitant]
     Active Substance: HUMAN RED BLOOD CELL
     Dosage: 2 UNITS
     Route: 041
     Dates: start: 20130321, end: 20130321
  43. CONCENTRATED RED CELLS [Concomitant]
     Active Substance: HUMAN RED BLOOD CELL
     Dosage: 2 UNITS
     Route: 041
     Dates: start: 20130329, end: 20130329
  44. PLATELETS [Concomitant]
     Active Substance: HUMAN PLATELET, ALLOGENIC
     Dosage: 10 UNITS
     Route: 041
     Dates: start: 20130311, end: 20130312
  45. PLATELETS [Concomitant]
     Active Substance: HUMAN PLATELET, ALLOGENIC
     Dosage: 10 UNITS
     Route: 041
     Dates: start: 20130314, end: 20130314
  46. REVLIMID [Suspect]
     Active Substance: LENALIDOMIDE
     Dosage: 10 MILLIGRAM
     Route: 048
     Dates: start: 20130304, end: 20130310
  47. VELCADE [Suspect]
     Active Substance: BORTEZOMIB
     Dosage: 1.8 MILLIGRAM
     Route: 041
     Dates: start: 20130409, end: 20130409
  48. ALOSITOL [Concomitant]
     Active Substance: ALLOPURINOL
     Indication: HYPERURICAEMIA
     Dosage: 400 MILLIGRAM
     Route: 048
     Dates: start: 20130227, end: 20130228
  49. CLARITH [Concomitant]
     Active Substance: CLARITHROMYCIN
     Indication: PLASMA CELL MYELOMA RECURRENT
     Dosage: 800 MILLIGRAM
     Route: 048
     Dates: start: 20130227, end: 20130330
  50. CRAVIT [Concomitant]
     Active Substance: LEVOFLOXACIN
     Indication: INFECTION
     Dosage: 500 MILLIGRAM
     Route: 048
     Dates: start: 20130313, end: 20130319
  51. FLAGYL [Concomitant]
     Active Substance: METRONIDAZOLE\METRONIDAZOLE HYDROCHLORIDE
     Indication: PRODUCT USED FOR UNKNOWN INDICATION
     Dosage: 750 MILLIGRAM
     Route: 048
     Dates: start: 20130313, end: 20130325
  52. TWINPAL [Concomitant]
     Active Substance: AMINO ACIDS\CARBOHYDRATES\ELECTROLYTES NOS\VITAMINS
     Indication: MALNUTRITION
     Dosage: 1 LITERS
     Route: 041
     Dates: start: 20130227, end: 20130304
  53. TWINPAL [Concomitant]
     Active Substance: AMINO ACIDS\CARBOHYDRATES\ELECTROLYTES NOS\VITAMINS
     Dosage: 500 MILLILITER
     Route: 041
     Dates: start: 20130305, end: 20130312
  54. VANCOMYCIN [Concomitant]
     Active Substance: VANCOMYCIN
     Indication: INFECTION
     Dosage: 2 GRAM
     Route: 041
     Dates: start: 20130226, end: 20130328
  55. ALBUMIN [Concomitant]
     Active Substance: ALBUMIN HUMAN
     Indication: HYPOALBUMINAEMIA
     Dosage: 50 MILLILITER
     Route: 041
     Dates: start: 20130225, end: 20130301
  56. CONCENTRATED RED CELLS [Concomitant]
     Active Substance: HUMAN RED BLOOD CELL
     Dosage: 2 UNITS
     Route: 041
     Dates: start: 20130302, end: 20130302
  57. CONCENTRATED RED CELLS [Concomitant]
     Active Substance: HUMAN RED BLOOD CELL
     Dosage: 2 UNITS
     Route: 041
     Dates: start: 20130326, end: 20130326
  58. PLATELETS [Concomitant]
     Active Substance: HUMAN PLATELET, ALLOGENIC
     Dosage: 10 UNITS
     Route: 041
     Dates: start: 20130308, end: 20130308
  59. PLATELETS [Concomitant]
     Active Substance: HUMAN PLATELET, ALLOGENIC
     Dosage: 20 UNITS
     Route: 041
     Dates: start: 20130313, end: 20130313
  60. REVLIMID [Suspect]
     Active Substance: LENALIDOMIDE
     Dosage: 10 MILLIGRAM
     Route: 048
     Dates: start: 20130413, end: 20130422
  61. SOLDEM 6 [Concomitant]
     Indication: MALNUTRITION
     Dosage: 1000 MILLILITER
     Route: 041
     Dates: start: 20130315, end: 20130316
  62. AMIKACIN SULFATE. [Concomitant]
     Active Substance: AMIKACIN SULFATE
     Indication: INFECTION
     Dosage: 400 MILLIGRAM
     Route: 041
     Dates: start: 20130227, end: 20130302
  63. AMIPAREN [Concomitant]
     Active Substance: AMINO ACIDS, SOURCE UNSPECIFIED
     Indication: MALNUTRITION
     Dosage: 300 MILLILITER
     Route: 041
     Dates: start: 20130313, end: 20130318
  64. LENADEX [Suspect]
     Active Substance: DEXAMETHASONE ACETATE
     Dosage: 20 MILLIGRAM
     Route: 048
     Dates: start: 20130311, end: 20130312
  65. MEROPEN [Concomitant]
     Active Substance: MEROPENEM
     Indication: INFECTION
     Dosage: 2000 MILLIGRAM
     Route: 041
     Dates: start: 20130225, end: 20130330
  66. ALBUMIN [Concomitant]
     Active Substance: ALBUMIN HUMAN
     Dosage: 50 MILLILITER
     Route: 041
     Dates: start: 20130307, end: 20130307
  67. OMEPRAL [Concomitant]
     Active Substance: OMEPRAZOLE
     Indication: GASTRIC ULCER
     Dosage: 40 MILLIGRAM
     Route: 041
     Dates: start: 20130313, end: 20130319
  68. HICALIQ RF [Concomitant]
     Active Substance: CALCIUM GLUCONATE\DEXTROSE\MAGNESIUM SULFATE\POTASSIUM ACETATE\POTASSIUM PHOSPHATE, DIBASIC\ZINC SULFATE
     Indication: MALNUTRITION
     Dosage: 500 MILLILITER
     Route: 041
     Dates: start: 20130313, end: 20130318
  69. POLARAMINE [Concomitant]
     Active Substance: DEXCHLORPHENIRAMINE MALEATE
     Indication: ALLERGY PROPHYLAXIS
     Dosage: 1 MILLILITER
     Route: 041
     Dates: start: 20130303, end: 20130330
  70. CONCENTRATED RED CELLS [Concomitant]
     Active Substance: HUMAN RED BLOOD CELL
     Dosage: 2 UNITS
     Route: 041
     Dates: start: 20130311, end: 20130311
  71. CONCENTRATED RED CELLS [Concomitant]
     Active Substance: HUMAN RED BLOOD CELL
     Dosage: 2 UNITS
     Route: 041
     Dates: start: 20130313, end: 20130313
  72. CONCENTRATED RED CELLS [Concomitant]
     Active Substance: HUMAN RED BLOOD CELL
     Dosage: 2 UNITS
     Route: 041
     Dates: start: 20130318, end: 20130319
  73. REVLIMID [Suspect]
     Active Substance: LENALIDOMIDE
     Indication: PLASMA CELL MYELOMA RECURRENT
     Route: 048
     Dates: start: 20121103, end: 201212
  74. VELCADE [Suspect]
     Active Substance: BORTEZOMIB
     Dosage: 1.85 MILLILITER
     Route: 041
     Dates: start: 20130304, end: 20130311
  75. URSO [Concomitant]
     Active Substance: URSODIOL
     Indication: LIVER DISORDER
     Dosage: 600 MILLIGRAM
     Route: 048
     Dates: start: 20130302, end: 20130330
  76. SOLDEM 1 [Concomitant]
     Active Substance: DEXTROSE\SODIUM CHLORIDE\SODIUM LACTATE
     Dosage: 1000 MILLILITER
     Route: 041
     Dates: start: 20130313, end: 20130316
  77. XYLOCAINE [Concomitant]
     Active Substance: LIDOCAINE HYDROCHLORIDE
     Indication: PRODUCT USED FOR UNKNOWN INDICATION
     Dosage: 20 MILLILITER
     Route: 058
     Dates: start: 20130313, end: 20130313
  78. DAIMEDIN [Concomitant]
     Indication: HYPOVITAMINOSIS
     Route: 041
     Dates: start: 20130313, end: 20130318
  79. ORGARAN [Concomitant]
     Active Substance: DANAPAROID SODIUM
     Indication: DISSEMINATED INTRAVASCULAR COAGULATION
     Dosage: 2 MILLILITER
     Route: 041
     Dates: start: 20130313, end: 20130315
  80. HEPARIN N5 [Concomitant]
     Indication: PRODUCT USED FOR UNKNOWN INDICATION
     Dosage: 5 MILLILITER
     Route: 041
     Dates: start: 20130313, end: 20130313
  81. CONCENTRATED RED CELLS [Concomitant]
     Active Substance: HUMAN RED BLOOD CELL
     Indication: PLASMA CELL MYELOMA
     Dosage: 2 UNITS
     Route: 041
     Dates: start: 20130225, end: 20130227
  82. PLATELETS [Concomitant]
     Active Substance: HUMAN PLATELET, ALLOGENIC
     Dosage: 10 UNITS
     Route: 041
     Dates: start: 20130318, end: 20130319

REACTIONS (6)
  - Tumour lysis syndrome [Recovering/Resolving]
  - Neutropenia [Unknown]
  - Hyperglycaemia [Recovering/Resolving]
  - Hypokalaemia [Unknown]
  - Disseminated intravascular coagulation [Unknown]
  - Pseudomembranous colitis [Unknown]

NARRATIVE: CASE EVENT DATE: 20130304
